FAERS Safety Report 4664736-X (Version None)
Quarter: 2005Q2

REPORT INFORMATION
  Report Type: 
  Country: None (occurrence: None)
  Receive Date: 20050516
  Receipt Date: 20050502
  Transmission Date: 20051028
  Serious: Yes (Death)
  Sender: FDA-Public Use
  Company Number: 2001047957GB

PATIENT
  Age: 43 Year
  Sex: Male
  Weight: 40.8 kg

DRUGS (5)
  1. PREDNISONE [Suspect]
     Indication: RHEUMATOID ARTHRITIS
     Dosage: 7.5 MG (1 IN 1 D)
     Dates: start: 20000518, end: 20000530
  2. SULFASALAZINE [Suspect]
     Indication: RHEUMATOID ARTHRITIS
     Dosage: 2000 MG (500 MG, 4 IN 1 D)
     Dates: start: 20000518, end: 20000530
  3. DICLOFENAC (DICLOFENAC) [Suspect]
     Indication: RHEUMATOID ARTHRITIS
     Dosage: 75 MG (1 IN 1 D), ORAL
     Route: 048
     Dates: start: 20000518, end: 20000530
  4. METHYLPREDNISOLONE ACETATE [Concomitant]
  5. SERTRALINE HCL [Concomitant]

REACTIONS (7)
  - ABDOMINAL PAIN UPPER [None]
  - GASTRIC PERFORATION [None]
  - GASTRIC ULCER PERFORATION [None]
  - GASTRITIS EROSIVE [None]
  - PERITONITIS [None]
  - RHEUMATOID VASCULITIS [None]
  - VOMITING [None]
